FAERS Safety Report 9110556 (Version 1)
Quarter: 2013Q1

REPORT INFORMATION
  Report Type: Spontaneous
  Country: US (occurrence: US)
  Receive Date: 20130219
  Receipt Date: 20130219
  Transmission Date: 20140127
  Serious: No
  Sender: FDA-Public Use
  Company Number: US-BRACCO-008166

PATIENT
  Age: 72 Year
  Sex: Male

DRUGS (3)
  1. ISOVUE 300 [Suspect]
     Indication: MUSCULAR WEAKNESS
     Route: 037
     Dates: start: 20120530, end: 20120530
  2. ISOVUE 300 [Suspect]
     Indication: SPINAL MYELOGRAM
     Route: 037
     Dates: start: 20120530, end: 20120530
  3. OTHER CARDIAC PREPARATIONS [Concomitant]

REACTIONS (1)
  - Wrong drug administered [Recovered/Resolved]
